FAERS Safety Report 10271135 (Version 1)
Quarter: 2014Q3

REPORT INFORMATION
  Report Type: Spontaneous
  Country: US (occurrence: US)
  Receive Date: 20140701
  Receipt Date: 20140701
  Transmission Date: 20150326
  Serious: Yes (Life-Threatening, Hospitalization, Other)
  Sender: FDA-Public Use
  Company Number: US-ACTAVIS-2014-14003

PATIENT
  Age: 21 Year
  Sex: Male

DRUGS (2)
  1. OLANZAPINE (UNKNOWN) [Suspect]
     Active Substance: OLANZAPINE
     Indication: OVERDOSE
     Dosage: 600 MG, SINGLE
     Route: 048
  2. CITALOPRAM HYDROBROMIDE (WATSON LABORATORIES) [Suspect]
     Active Substance: CITALOPRAM HYDROBROMIDE
     Indication: OVERDOSE
     Dosage: 11.6 G, SINGLE
     Route: 048

REACTIONS (11)
  - Convulsion [Unknown]
  - Bradycardia [Unknown]
  - Overdose [Unknown]
  - Electrocardiogram QT prolonged [Unknown]
  - Hypotension [Unknown]
  - Miosis [Unknown]
  - Unresponsive to stimuli [Unknown]
  - Pneumonia aspiration [Unknown]
  - Electrocardiogram QRS complex prolonged [Unknown]
  - Body temperature decreased [Unknown]
  - Antidepressant drug level above therapeutic [Unknown]
